FAERS Safety Report 13016417 (Version 4)
Quarter: 2017Q3

REPORT INFORMATION
  Report Type: Spontaneous
  Country: US (occurrence: US)
  Receive Date: 20161212
  Receipt Date: 20170922
  Transmission Date: 20171127
  Serious: Yes (Other)
  Sender: FDA-Public Use
  Company Number: US-JNJFOC-20161200572

PATIENT
  Age: 55 Year
  Sex: Male

DRUGS (1)
  1. XARELTO [Suspect]
     Active Substance: RIVAROXABAN
     Indication: PULMONARY EMBOLISM
     Dosage: 15 MG AND 20 MG
     Route: 048
     Dates: start: 20130810, end: 20131207

REACTIONS (3)
  - Ulcer haemorrhage [Unknown]
  - Gastrointestinal haemorrhage [Unknown]
  - Haemorrhagic cyst [Unknown]

NARRATIVE: CASE EVENT DATE: 201309
